FAERS Safety Report 10687668 (Version 1)
Quarter: 2015Q1

REPORT INFORMATION
  Report Type: Spontaneous
  Country: FR (occurrence: FR)
  Receive Date: 20150102
  Receipt Date: 20150102
  Transmission Date: 20150720
  Serious: Yes (Hospitalization)
  Sender: FDA-Public Use
  Company Number: FR-SA-2014SA179826

PATIENT
  Age: 72 Year
  Sex: Female

DRUGS (7)
  1. ESIDREX [Concomitant]
     Active Substance: HYDROCHLOROTHIAZIDE
     Route: 065
  2. XARELTO [Concomitant]
     Active Substance: RIVAROXABAN
     Indication: PULMONARY EMBOLISM
     Route: 065
     Dates: start: 20140930
  3. STILNOX [Suspect]
     Active Substance: ZOLPIDEM TARTRATE
     Indication: INSOMNIA
     Route: 048
     Dates: start: 20140930, end: 20141021
  4. INEXIUM [Concomitant]
     Active Substance: ESOMEPRAZOLE
     Route: 065
  5. APROVEL [Concomitant]
     Active Substance: IRBESARTAN
     Route: 065
  6. DOLIPRANE [Concomitant]
     Active Substance: ACETAMINOPHEN
     Route: 065
  7. HEPARIN [Concomitant]
     Active Substance: HEPARIN SODIUM
     Indication: PULMONARY EMBOLISM
     Route: 065
     Dates: start: 20140920, end: 20140930

REACTIONS (4)
  - Agitation [Recovered/Resolved]
  - Nightmare [Recovered/Resolved]
  - Facial bones fracture [Recovered/Resolved]
  - Fall [Recovered/Resolved]

NARRATIVE: CASE EVENT DATE: 20141021
